FAERS Safety Report 5914195-1 (Version None)
Quarter: 2008Q4

REPORT INFORMATION
  Report Type: 
  Country: None (occurrence: None)
  Receive Date: 20081009
  Receipt Date: 20081001
  Transmission Date: 20090506
  Serious: Yes (Other)
  Sender: FDA-Public Use
  Company Number: US-PFIZER INC-2008083545

PATIENT
  Sex: Female
  Weight: 68 kg

DRUGS (6)
  1. LYRICA [Suspect]
     Indication: FIBROMYALGIA
  2. TOPAMAX [Concomitant]
  3. ALL OTHER THERAPEUTIC PRODUCTS [Concomitant]
  4. SOMA [Concomitant]
  5. XANAX [Concomitant]
  6. ATIVAN [Concomitant]

REACTIONS (15)
  - BLOOD GLUCOSE DECREASED [None]
  - BLOOD POTASSIUM DECREASED [None]
  - DEPRESSION [None]
  - DYSARTHRIA [None]
  - FALL [None]
  - JOINT SPRAIN [None]
  - LOSS OF CONSCIOUSNESS [None]
  - MALAISE [None]
  - NEUROPATHY PERIPHERAL [None]
  - RESTLESS LEGS SYNDROME [None]
  - SOMNOLENCE [None]
  - THINKING ABNORMAL [None]
  - TREMOR [None]
  - VOMITING [None]
  - WOUND [None]
